FAERS Safety Report 21099284 (Version 4)
Quarter: 2023Q1

REPORT INFORMATION
  Report Type: Spontaneous
  Country: ES (occurrence: ES)
  Receive Date: 20220719
  Receipt Date: 20230214
  Transmission Date: 20230418
  Serious: Yes (Life-Threatening, Hospitalization, Other)
  Sender: FDA-Public Use
  Company Number: None

PATIENT
  Age: 77 Year
  Sex: Male

DRUGS (21)
  1. HALOPERIDOL [Suspect]
     Active Substance: HALOPERIDOL
     Indication: Confusional state
     Route: 065
  2. DEXMEDETOMIDINE [Suspect]
     Active Substance: DEXMEDETOMIDINE
     Indication: Confusional state
     Route: 065
  3. CLONIDINE [Suspect]
     Active Substance: CLONIDINE
     Indication: Confusional state
     Route: 065
  4. QUETIAPINE [Suspect]
     Active Substance: QUETIAPINE
     Indication: Confusional state
     Route: 065
  5. OLANZAPINE [Suspect]
     Active Substance: OLANZAPINE
     Indication: Confusional state
     Route: 065
  6. MORPHINE [Suspect]
     Active Substance: MORPHINE
     Indication: Post laminectomy syndrome
     Route: 037
  7. MORPHINE [Suspect]
     Active Substance: MORPHINE
     Indication: Analgesic therapy
     Route: 048
  8. MORPHINE [Suspect]
     Active Substance: MORPHINE
     Dosage: 25% OF THE EQUIVALENT DOSE OF INTRATHECAL MORPHINE
     Route: 042
  9. MORPHINE [Suspect]
     Active Substance: MORPHINE
     Route: 037
  10. CEFTAZIDIME [Suspect]
     Active Substance: CEFTAZIDIME
     Indication: Device related infection
     Route: 065
  11. CLOXACILLIN [Suspect]
     Active Substance: CLOXACILLIN
     Indication: Device related infection
     Route: 065
  12. MORPHINE [Concomitant]
     Active Substance: MORPHINE
     Indication: Post laminectomy syndrome
     Dosage: DOSE INCREASED
     Route: 065
  13. MORPHINE [Concomitant]
     Active Substance: MORPHINE
     Indication: Pain
     Dosage: PATIENT CONTROLLED ANALGESIA PUMP, INITIALLY, DOSE OF IV MORPHINE ADMINISTERED AS A CONTINUOUS INFUS
  14. MORPHINE [Concomitant]
     Active Substance: MORPHINE
     Dosage: ORAL CONTROLLED-RELEASE MORPHINE (MST) WAS STARTED PROGRESSIVELY UNTIL 50% OF THE EQUIVALENT DOSE OF
  15. MORPHINE [Concomitant]
     Active Substance: MORPHINE
  16. MORPHINE [Concomitant]
     Active Substance: MORPHINE
     Dosage: DOSE DECREASED
  17. MORPHINE [Concomitant]
     Active Substance: MORPHINE
  18. MORPHINE [Concomitant]
     Active Substance: MORPHINE
     Dosage: DESCENDING ORAL MORPHINE REGIMEN
  19. MORPHINE [Concomitant]
     Active Substance: MORPHINE
  20. CLOXACILLIN [Concomitant]
     Active Substance: CLOXACILLIN
     Indication: Postoperative wound infection
  21. CEFTAZIDIME [Concomitant]
     Active Substance: CEFTAZIDIME
     Indication: Postoperative wound infection

REACTIONS (12)
  - Haemodynamic instability [Recovered/Resolved]
  - Product use in unapproved indication [Unknown]
  - Drug ineffective for unapproved indication [Unknown]
  - Respiratory failure [Recovered/Resolved]
  - Toxicity to various agents [Recovering/Resolving]
  - Delirium [Recovering/Resolving]
  - Drug ineffective [Recovered/Resolved]
  - Confusional state [Recovering/Resolving]
  - Somnolence [Recovering/Resolving]
  - Drug withdrawal syndrome [Recovering/Resolving]
  - Somnolence [Recovered/Resolved]
  - Condition aggravated [Recovered/Resolved]
